FAERS Safety Report 6491729-2 (Version None)
Quarter: 2009Q4

REPORT INFORMATION
  Report Type: 
  Country: None (occurrence: None)
  Receive Date: 20091208
  Receipt Date: 20091130
  Transmission Date: 20100525
  Serious: Yes (Other)
  Sender: FDA-Public Use
  Company Number: 2009JP007220

PATIENT
  Sex: Female

DRUGS (1)
  1. SOLIFENACIN SUCCINATE (VESICARE) [Suspect]
     Indication: URINARY INCONTINENCE
     Dosage: ORAL
     Route: 048

REACTIONS (2)
  - AMNESIA [None]
  - CONFUSIONAL STATE [None]
